FAERS Safety Report 4917184-9 (Version None)
Quarter: 2006Q1

REPORT INFORMATION
  Report Type: 
  Country: None (occurrence: None)
  Receive Date: 20060214
  Receipt Date: 20060202
  Transmission Date: 20060701
  Serious: Yes (Other)
  Sender: FDA-Public Use
  Company Number: GB-2006-000886

PATIENT
  Age: 49 Year
  Sex: Female
  Weight: 68 kg

DRUGS (3)
  1. MIRENA [Suspect]
     Dosage: 20 UG/DAY, INTRAVENOUS
     Route: 042
     Dates: start: 20000524, end: 20060118
  2. LEVOTHYROXINE SODIUM [Concomitant]
  3. CYANOCOBALAMIN [Concomitant]

REACTIONS (4)
  - COMPLICATION OF DEVICE REMOVAL [None]
  - DEVICE FAILURE [None]
  - IUCD COMPLICATION [None]
  - IUD MIGRATION [None]
